FAERS Safety Report 8198946-4 (Version None)
Quarter: 2012Q1

REPORT INFORMATION
  Report Type: 
  Country: None (occurrence: None)
  Receive Date: 20120309
  Receipt Date: 20120302
  Transmission Date: 20120608
  Serious: Yes (Other)
  Sender: FDA-Public Use
  Company Number: US-AMGEN-USASP2012014137

PATIENT
  Age: 76 Year
  Sex: Male

DRUGS (5)
  1. ARANESP [Suspect]
     Indication: RENAL FAILURE CHRONIC
     Dosage: 300 MUG, QWK
     Dates: start: 20080507
  2. MICARDIS [Concomitant]
  3. SENSIPAR [Suspect]
     Indication: RENAL FAILURE CHRONIC
     Dosage: UNK
  4. FUROSEMIDE [Concomitant]
     Dosage: UNK
  5. MICARDIS [Concomitant]
     Dosage: UNK
     Dates: start: 20110217

REACTIONS (2)
  - MALAISE [None]
  - THERAPEUTIC RESPONSE DECREASED [None]
